FAERS Safety Report 5605572-7 (Version None)
Quarter: 2008Q1

REPORT INFORMATION
  Report Type: 
  Country: None (occurrence: None)
  Receive Date: 20080129
  Receipt Date: 20080121
  Transmission Date: 20080703
  Serious: Yes (Hospitalization)
  Sender: FDA-Public Use
  Company Number: HK-BRISTOL-MYERS SQUIBB COMPANY-13988308

PATIENT
  Age: 43 Year
  Sex: Male
  Weight: 89 kg

DRUGS (3)
  1. CETUXIMAB [Suspect]
     Indication: NASOPHARYNGEAL CANCER
     Dosage: STRENGTH 2 MG/ML
     Dates: start: 20071108, end: 20071108
  2. CISPLATIN [Suspect]
     Indication: NASOPHARYNGEAL CANCER
     Dates: start: 20071108, end: 20071108
  3. RADIATION THERAPY [Suspect]
     Indication: NASOPHARYNGEAL CANCER
     Dosage: LAST RT GIVEN ON 30NOV07

REACTIONS (1)
  - DYSPHAGIA [None]
